FAERS Safety Report 14048754 (Version 2)
Quarter: 2017Q4

REPORT INFORMATION
  Report Type: Spontaneous
  Country: US (occurrence: US)
  Receive Date: 20171005
  Receipt Date: 20171120
  Transmission Date: 20180321
  Serious: Yes (Other)
  Sender: FDA-Public Use
  Company Number: US-ABBOTT MEDICAL OPTICS-2028920

PATIENT
  Sex: Male

DRUGS (1)
  1. BLINK GEL TEARS [Suspect]
     Active Substance: POLYETHYLENE GLYCOL 400
     Indication: DRY EYE
     Route: 047

REACTIONS (2)
  - Eye irritation [Recovered/Resolved]
  - Visual impairment [Recovered/Resolved]
